FAERS Safety Report 8182605-8 (Version None)
Quarter: 2012Q1

REPORT INFORMATION
  Report Type: 
  Country: None (occurrence: None)
  Receive Date: 20120305
  Receipt Date: 20120302
  Transmission Date: 20120608
  Serious: Yes (Hospitalization, Other)
  Sender: FDA-Public Use
  Company Number: US-SHIRE-ALL1-2012-00183

PATIENT
  Sex: Female
  Weight: 32.2 kg

DRUGS (4)
  1. METHYLPHENIDATE [Concomitant]
     Indication: ATTENTION DEFICIT/HYPERACTIVITY DISORDER
     Dosage: 36 MG, 1X/DAY:QD
     Route: 048
     Dates: start: 20110621
  2. INTUNIV [Suspect]
     Dosage: 1 MG, 1X/DAY:QD
     Route: 048
     Dates: start: 20100301, end: 20100401
  3. INTUNIV [Suspect]
     Dosage: 2 MG, 1X/DAY:QD
     Route: 048
     Dates: start: 20100401, end: 20110701
  4. INTUNIV [Suspect]
     Indication: ATTENTION DEFICIT/HYPERACTIVITY DISORDER
     Dosage: 3 MG, 1X/DAY:QD
     Route: 048
     Dates: start: 20110601, end: 20111116

REACTIONS (5)
  - GASTROOESOPHAGEAL REFLUX DISEASE [None]
  - HEART RATE INCREASED [None]
  - BODY TEMPERATURE INCREASED [None]
  - SINUS BRADYCARDIA [None]
  - ORTHOSTATIC HYPOTENSION [None]
